FAERS Safety Report 8221328-3 (Version None)
Quarter: 2012Q1

REPORT INFORMATION
  Report Type: 
  Country: None (occurrence: None)
  Receive Date: 20120316
  Receipt Date: 20120229
  Transmission Date: 20120608
  Serious: Yes (Other)
  Sender: FDA-Public Use
  Company Number: JPI-P-019961

PATIENT
  Age: 48 Year
  Sex: Female
  Weight: 88.905 kg

DRUGS (5)
  1. XYREM [Suspect]
     Indication: FIBROMYALGIA
     Dosage: 9 GM (4.5 GM, 2 IN 1 D, 2.25 GM TO 4.5 GM TWICE NIGHTLY,ORAL
     Route: 048
     Dates: end: 20111201
  2. XYREM [Suspect]
     Indication: FIBROMYALGIA
     Dosage: 9 GM (4.5 GM, 2 IN 1 D, 2.25 GM TO 4.5 GM TWICE NIGHTLY,ORAL
     Route: 048
     Dates: start: 20091016
  3. TRIAMTERENE [Concomitant]
  4. PRISTIQ [Concomitant]
  5. LEVOTHYROXINE SODIUM [Concomitant]

REACTIONS (1)
  - SPINAL FRACTURE [None]
